FAERS Safety Report 13105321 (Version 1)
Quarter: 2017Q1

REPORT INFORMATION
  Report Type: Report from Study
  Country: ES (occurrence: ES)
  Receive Date: 20170111
  Receipt Date: 20170111
  Transmission Date: 20170428
  Serious: Yes (Death)
  Sender: FDA-Public Use
  Company Number: ES-PFIZER INC-2017008940

PATIENT
  Age: 71 Year
  Sex: Male

DRUGS (11)
  1. PREDNISONE. [Concomitant]
     Active Substance: PREDNISONE
     Dosage: 1/4-0-0
     Route: 048
     Dates: start: 20150520, end: 20150818
  2. ENALAPRIL [Interacting]
     Active Substance: ENALAPRIL
     Indication: HYPERTENSION
     Dosage: 10 MG, 2X/DAY (1-0-1)
     Route: 048
     Dates: start: 20150312, end: 20150818
  3. CARVEDILOL. [Interacting]
     Active Substance: CARVEDILOL
     Dosage: 6.25 MG, 2X/DAY (1-0-1)
     Route: 048
     Dates: start: 20150602, end: 20150818
  4. SIMVASTATIN. [Concomitant]
     Active Substance: SIMVASTATIN
     Indication: DYSLIPIDAEMIA
     Dosage: UNK, 1X/DAY (0-0-19
     Route: 048
     Dates: start: 20120203
  5. PARACETAMOL [Concomitant]
     Active Substance: ACETAMINOPHEN
     Indication: PAIN
     Dosage: UNK, WEEKLY (1-0-1)
     Route: 048
     Dates: start: 20121026
  6. DIAMICRON [Concomitant]
     Active Substance: GLICLAZIDE
     Indication: TYPE 2 DIABETES MELLITUS
     Dosage: UNK, 1X/DAY (1-0-0)
     Route: 048
     Dates: start: 20120913
  7. TORASEMIDE [Concomitant]
     Active Substance: TORSEMIDE
     Indication: HYPERTENSION
     Dosage: UNK, 1X/DAY (1-0-0)
     Route: 048
     Dates: start: 20150714
  8. OMEPRAZOLE. [Concomitant]
     Active Substance: OMEPRAZOLE
     Indication: PROPHYLAXIS AGAINST GASTROINTESTINAL ULCER
     Dosage: 1 DF, UNK
     Route: 048
     Dates: start: 20120913
  9. ACTRAPID [Concomitant]
     Active Substance: INSULIN HUMAN
     Indication: TYPE 2 DIABETES MELLITUS
     Dosage: 8-8-8
     Route: 058
     Dates: start: 20120913
  10. ALDACTONE [Suspect]
     Active Substance: SPIRONOLACTONE
     Indication: CARDIAC FAILURE CONGESTIVE
     Dosage: 25 MG, 1X/DAY (1-0-0)
     Route: 048
     Dates: start: 20150630, end: 20150818
  11. INSULATARD /00646002/ [Concomitant]
     Active Substance: INSULIN HUMAN
     Indication: TYPE 2 DIABETES MELLITUS
     Dosage: 10 IU, 1X/DAY
     Route: 058
     Dates: start: 20150602

REACTIONS (3)
  - Ventricular tachycardia [Fatal]
  - Drug interaction [Fatal]
  - Hyperkalaemia [Fatal]

NARRATIVE: CASE EVENT DATE: 20150818
